FAERS Safety Report 4969486-8 (Version None)
Quarter: 2006Q2

REPORT INFORMATION
  Report Type: 
  Country: None (occurrence: None)
  Receive Date: 20060406
  Receipt Date: 20060328
  Transmission Date: 20061013
  Serious: Yes (Other)
  Sender: FDA-Public Use
  Company Number: 163-21880-06030266

PATIENT
  Age: 78 Year
  Sex: Female

DRUGS (5)
  1. REVLIMID [Suspect]
     Indication: MYELODYSPLASTIC SYNDROME
     Dosage: 5 MG, QD, ORAL
     Route: 048
     Dates: start: 20060214, end: 20060307
  2. REVLIMID [Suspect]
     Indication: MYELODYSPLASTIC SYNDROME
     Dosage: 5 MG, QD, ORAL
     Route: 048
     Dates: start: 20060315, end: 20060321
  3. BETA BLOCKER (BETA BLOCKING AGENTS) [Concomitant]
  4. PAXIL [Concomitant]
  5. ACIPHEX [Concomitant]

REACTIONS (1)
  - PANCYTOPENIA [None]
